FAERS Safety Report 24749159 (Version 2)
Quarter: 2024Q4

REPORT INFORMATION
  Report Type: Spontaneous
  Country: US (occurrence: US)
  Receive Date: 20241218
  Receipt Date: 20241218
  Transmission Date: 20250114
  Serious: Yes (Hospitalization, Other)
  Sender: IPSEN BIOPHARMACEUTICALS, INC.
  Company Number: US-IPSEN Group, Research and Development-2024-24909

PATIENT
  Age: 77 Year
  Sex: Female

DRUGS (4)
  1. IQIRVO [Suspect]
     Active Substance: ELAFIBRANOR
     Indication: Primary biliary cholangitis
     Dosage: UNKNOWN
     Route: 065
     Dates: start: 202407, end: 2024
  2. OCALIVA [Suspect]
     Active Substance: OBETICHOLIC ACID
     Indication: Primary biliary cholangitis
     Dosage: 5 MILLIGRAM QD
     Route: 048
     Dates: start: 20170420
  3. OCALIVA [Suspect]
     Active Substance: OBETICHOLIC ACID
     Indication: Biliary cirrhosis
     Dosage: 10 MILLIGRAM QD
     Route: 048
     Dates: end: 202407
  4. OCALIVA [Suspect]
     Active Substance: OBETICHOLIC ACID
     Dosage: 10 MILLIGRAM QD
     Route: 048
     Dates: start: 20241104

REACTIONS (5)
  - Pancreatitis [Unknown]
  - Sepsis [Unknown]
  - Bacteraemia [Unknown]
  - Liver abscess [Unknown]
  - Liver function test increased [Not Recovered/Not Resolved]

NARRATIVE: CASE EVENT DATE: 20240901
